FAERS Safety Report 20245596 (Version 1)
Quarter: 2021Q4

REPORT INFORMATION
  Report Type: Spontaneous
  Country: TR (occurrence: None)
  Receive Date: 20211229
  Receipt Date: 20211229
  Transmission Date: 20220303
  Serious: Yes (Hospitalization, Other)
  Sender: FDA-Public Use
  Company Number: TR-MICRO LABS LIMITED-ML2021-04020

PATIENT
  Age: 14 Year
  Sex: Female
  Weight: 60 kg

DRUGS (1)
  1. VERAPAMIL HYDROCHLORIDE [Suspect]
     Active Substance: VERAPAMIL HYDROCHLORIDE
     Dosage: INGESTED 40 TABLETS VERAPAMIL (CONTAINS 120 MG VERAPAMIL HYDROCHLORIDE IN EACH TABLET)

REACTIONS (9)
  - Cardiogenic shock [Recovered/Resolved]
  - Ventricular extrasystoles [Recovered/Resolved]
  - Toxicity to various agents [Unknown]
  - Bradycardia [Recovered/Resolved]
  - Hypotension [Recovered/Resolved]
  - Vasodilatation [Recovered/Resolved]
  - Vomiting [Recovered/Resolved]
  - Dizziness [Recovered/Resolved]
  - Overdose [Unknown]
